FAERS Safety Report 18717265 (Version 1)
Quarter: 2021Q1

REPORT INFORMATION
  Report Type: Spontaneous
  Country: CN (occurrence: CN)
  Receive Date: 20210108
  Receipt Date: 20210108
  Transmission Date: 20210419
  Serious: Yes (Disabling)
  Sender: FDA-Public Use
  Company Number: CN-PFIZER INC-2021008390

PATIENT
  Age: 17 Year
  Sex: Male
  Weight: 50 kg

DRUGS (3)
  1. SOLU?MEDROL [Suspect]
     Active Substance: METHYLPREDNISOLONE SODIUM SUCCINATE
     Indication: NEPHROTIC SYNDROME
     Dosage: 24.000 MG, 2X/DAY
     Route: 041
  2. SOLU?MEDROL [Suspect]
     Active Substance: METHYLPREDNISOLONE SODIUM SUCCINATE
     Dosage: 24.000 MG, 2X/DAY
     Route: 041
     Dates: start: 20201223, end: 20201230
  3. MEDROL [Suspect]
     Active Substance: METHYLPREDNISOLONE
     Indication: NEPHROTIC SYNDROME
     Dosage: 8.000000 MG, 1X/DAY
     Route: 048
     Dates: start: 20100101, end: 20201215

REACTIONS (2)
  - Osteoporosis [Unknown]
  - Microsomia [Unknown]

NARRATIVE: CASE EVENT DATE: 20201225
